FAERS Safety Report 9291684 (Version 1)
Quarter: 2013Q2

REPORT INFORMATION
  Report Type: Spontaneous
  Country: US (occurrence: US)
  Receive Date: 20130516
  Receipt Date: 20130516
  Transmission Date: 20140414
  Serious: No
  Sender: FDA-Public Use
  Company Number: US-009507513-1305USA000955

PATIENT
  Age: 8 Year
  Sex: Male

DRUGS (2)
  1. LOTRIMIN ULTRA [Suspect]
     Indication: TINEA INFECTION
     Dosage: UNK, UNKNOWN
     Route: 061
  2. LOTRIMIN ULTRA [Suspect]
     Indication: MEDICAL OBSERVATION

REACTIONS (2)
  - Condition aggravated [Unknown]
  - Off label use [Unknown]
